FAERS Safety Report 9016654 (Version 1)
Quarter: 2013Q1

REPORT INFORMATION
  Report Type: Spontaneous
  Country: CA (occurrence: CA)
  Receive Date: 20130117
  Receipt Date: 20130117
  Transmission Date: 20140127
  Serious: Yes (Life-Threatening, Hospitalization)
  Sender: FDA-Public Use
  Company Number: CA-ALVOGEN-2013AL000019

PATIENT
  Age: 36 Year
  Sex: Female
  Weight: 59 kg

DRUGS (1)
  1. MACROBID [Suspect]
     Indication: PRODUCT USED FOR UNKNOWN INDICATION
     Route: 048

REACTIONS (2)
  - Respiratory failure [Not Recovered/Not Resolved]
  - Toxicity to various agents [Not Recovered/Not Resolved]
